FAERS Safety Report 18951561 (Version 1)
Quarter: 2021Q1

REPORT INFORMATION
  Report Type: Spontaneous
  Country: ZA (occurrence: ZA)
  Receive Date: 20210301
  Receipt Date: 20210301
  Transmission Date: 20210420
  Serious: Yes (Hospitalization, Other)
  Sender: FDA-Public Use
  Company Number: ZA-SCIEGEN-2021SCILIT00191

PATIENT
  Age: 19 Year
  Sex: Male

DRUGS (12)
  1. FLUOXETINE [Suspect]
     Active Substance: FLUOXETINE HYDROCHLORIDE
     Indication: MAJOR DEPRESSION
     Dosage: 24 H
     Route: 048
     Dates: start: 20150929, end: 20151020
  2. FLUOXETINE [Suspect]
     Active Substance: FLUOXETINE HYDROCHLORIDE
     Dosage: 24HRS
     Route: 048
     Dates: start: 20151020, end: 20151027
  3. FLUOXETINE [Suspect]
     Active Substance: FLUOXETINE HYDROCHLORIDE
     Route: 048
     Dates: start: 20151027, end: 20151030
  4. LORAZEPAM. [Concomitant]
     Active Substance: LORAZEPAM
     Route: 048
     Dates: start: 20151113, end: 20151116
  5. LORAZEPAM. [Concomitant]
     Active Substance: LORAZEPAM
     Route: 048
     Dates: start: 20151116
  6. QUETIAPINE. [Interacting]
     Active Substance: QUETIAPINE
     Indication: MANIA
     Route: 048
     Dates: end: 20151119
  7. VENLAFAXINE [Suspect]
     Active Substance: VENLAFAXINE HYDROCHLORIDE
     Dosage: FOR 7 DAYS
     Route: 048
     Dates: start: 20151109
  8. LORAZEPAM. [Concomitant]
     Active Substance: LORAZEPAM
     Indication: ANXIETY
     Route: 048
     Dates: start: 20151013, end: 20151113
  9. SODIUM VALPROATE [Interacting]
     Active Substance: VALPROATE SODIUM
     Indication: MOOD ALTERED
     Route: 048
  10. VENLAFAXINE [Suspect]
     Active Substance: VENLAFAXINE HYDROCHLORIDE
     Indication: MAJOR DEPRESSION
     Dosage: 24HRS
     Route: 048
     Dates: start: 20151109, end: 20151111
  11. VENLAFAXINE [Suspect]
     Active Substance: VENLAFAXINE HYDROCHLORIDE
     Route: 048
     Dates: start: 20151111, end: 20151113
  12. LORAZEPAM. [Concomitant]
     Active Substance: LORAZEPAM
     Route: 048
     Dates: start: 20151113, end: 20151116

REACTIONS (3)
  - Mania [Recovered/Resolved]
  - Drug interaction [None]
  - Drug ineffective [None]
